FAERS Safety Report 15467310 (Version 1)
Quarter: 2018Q4

REPORT INFORMATION
  Report Type: Spontaneous
  Country: US (occurrence: US)
  Receive Date: 20181001
  Receipt Date: 20181001
  Transmission Date: 20190204
  Serious: Yes (Hospitalization)
  Sender: FDA-Public Use
  Company Number: None

PATIENT
  Age: 28 Year
  Sex: Female
  Weight: 83.5 kg

DRUGS (1)
  1. INTRON A [Suspect]
     Active Substance: INTERFERON ALFA-2B
     Dosage: 20 MILLION IU
     Dates: end: 20140801

REACTIONS (3)
  - Pregnancy [None]
  - Nephrolithiasis [None]
  - Exposure during pregnancy [None]

NARRATIVE: CASE EVENT DATE: 20141201
